FAERS Safety Report 4866643-6 (Version None)
Quarter: 2005Q4

REPORT INFORMATION
  Report Type: 
  Country: None (occurrence: None)
  Receive Date: 20051227
  Receipt Date: 20051216
  Transmission Date: 20060501
  Serious: Yes (Hospitalization)
  Sender: FDA-Public Use
  Company Number: JP-JNJFOC-20051204104

PATIENT
  Age: 52 Year
  Sex: Female

DRUGS (4)
  1. RISPERDAL [Suspect]
     Route: 048
  2. RISPERDAL [Suspect]
     Indication: SCHIZOPHRENIA
     Route: 048
  3. NITRAZEPAM [Concomitant]
  4. SENNOSIDE [Concomitant]

REACTIONS (2)
  - PARALYSIS [None]
  - RHABDOMYOLYSIS [None]
